FAERS Safety Report 18672303 (Version 2)
Quarter: 2021Q3

REPORT INFORMATION
  Report Type: Report from Study
  Country: IL (occurrence: IL)
  Receive Date: 20201228
  Receipt Date: 20210728
  Transmission Date: 20211014
  Serious: Yes (Other)
  Sender: FDA-Public Use
  Company Number: PHHY2019IL187964

PATIENT
  Age: 37 Year
  Sex: Female

DRUGS (5)
  1. RECLAST [Suspect]
     Active Substance: ZOLEDRONIC ACID
     Indication: PRODUCT USED FOR UNKNOWN INDICATION
     Dosage: UNK
     Route: 065
  2. LETROZOLE. [Suspect]
     Active Substance: LETROZOLE
     Indication: PRODUCT USED FOR UNKNOWN INDICATION
     Dosage: UNK
     Route: 065
  3. KISQALI [Suspect]
     Active Substance: RIBOCICLIB
     Dosage: 600 MG, QD
     Route: 048
     Dates: start: 20200210, end: 20200813
  4. KISQALI [Suspect]
     Active Substance: RIBOCICLIB
     Indication: BREAST CANCER
     Dosage: 600 MG, QD
     Route: 048
     Dates: start: 20190725, end: 20200205
  5. KISQALI [Suspect]
     Active Substance: RIBOCICLIB
     Dosage: 600 MG, QD
     Route: 048
     Dates: start: 20200817, end: 20210713

REACTIONS (23)
  - Neutrophil count decreased [Recovered/Resolved]
  - Feeling cold [Recovered/Resolved]
  - Eye irritation [Unknown]
  - Pathological fracture [Unknown]
  - Nausea [Not Recovered/Not Resolved]
  - Breast cancer [Not Recovered/Not Resolved]
  - Pyrexia [Recovered/Resolved]
  - Bone pain [Recovered/Resolved]
  - Arthralgia [Recovering/Resolving]
  - Abdominal pain [Recovered/Resolved]
  - Pyrexia [Recovered/Resolved]
  - Neutrophil count decreased [Recovering/Resolving]
  - Cheilitis [Recovering/Resolving]
  - Cough [Recovered/Resolved]
  - Crepitations [Not Recovered/Not Resolved]
  - Lacrimation increased [Not Recovered/Not Resolved]
  - Proctalgia [Recovering/Resolving]
  - Mouth injury [Unknown]
  - Asthenia [Recovered/Resolved]
  - Malignant neoplasm progression [Not Recovered/Not Resolved]
  - Rhinorrhoea [Recovered/Resolved]
  - Tongue ulceration [Recovering/Resolving]
  - Pruritus [Recovering/Resolving]

NARRATIVE: CASE EVENT DATE: 20190804
